FAERS Safety Report 22287578 (Version 1)
Quarter: 2023Q2

REPORT INFORMATION
  Report Type: Spontaneous
  Country: US (occurrence: US)
  Receive Date: 20230505
  Receipt Date: 20230505
  Transmission Date: 20230721
  Serious: No
  Sender: FDA-Public Use
  Company Number: US-BEH-2023158071

PATIENT
  Sex: Female

DRUGS (1)
  1. HIZENTRA [Suspect]
     Active Substance: HUMAN IMMUNOGLOBULIN G
     Indication: Hypogammaglobulinaemia
     Dosage: 10 MILLIGRAM, QW
     Route: 058
     Dates: start: 202301

REACTIONS (4)
  - Anxiety [Unknown]
  - Infusion site nodule [Unknown]
  - No adverse event [Unknown]
  - Product dose omission issue [Unknown]
